FAERS Safety Report 9215349 (Version 1)
Quarter: 2013Q2

REPORT INFORMATION
  Report Type: Other
  Country: SE (occurrence: SE)
  Receive Date: 20130405
  Receipt Date: 20130405
  Transmission Date: 20140414
  Serious: Yes (Hospitalization)
  Sender: FDA-Public Use
  Company Number: SE-NICOBRDEVP-2013-06081

PATIENT
  Age: 72 Year
  Sex: Male

DRUGS (2)
  1. DIAZEPAM [Suspect]
     Indication: DEPRESSION
     Dosage: UNK, UNKNOWN
     Route: 065
  2. AMITRIPTYLINE [Suspect]
     Indication: DEPRESSION
     Dosage: UNK, UNKNOWN

REACTIONS (8)
  - Gait disturbance [Recovered/Resolved]
  - Speech disorder [Recovered/Resolved]
  - Amnesia [Recovered/Resolved]
  - Overdose [Recovered/Resolved]
  - Potentiating drug interaction [Recovered/Resolved]
  - Drug interaction [Recovered/Resolved]
  - Dysstasia [None]
  - Depression [None]
